FAERS Safety Report 8646824 (Version 2)
Quarter: 2014Q1

REPORT INFORMATION
  Report Type: Spontaneous
  Country: US (occurrence: US)
  Receive Date: 20120703
  Receipt Date: 20140228
  Transmission Date: 20141002
  Serious: No
  Sender: FDA-Public Use
  Company Number: US-PFIZER INC-2012155494

PATIENT
  Age: 43 Year
  Sex: Female
  Weight: 88.4 kg

DRUGS (5)
  1. SOMAVERT [Suspect]
     Indication: ACROMEGALY
     Dosage: UNK
     Route: 030
     Dates: start: 2011, end: 201201
  2. SOMAVERT [Suspect]
     Indication: INSULIN-LIKE GROWTH FACTOR INCREASED
     Dosage: UNK
     Route: 030
     Dates: start: 201201, end: 2012
  3. SOMATULINE [Concomitant]
     Indication: ACROMEGALY
     Dosage: 120 MG, WEEKLY
  4. LOSARTAN [Concomitant]
     Indication: HYPERTENSION
     Dosage: 50 MG, UNK
  5. HYDROCHLOROTHIAZIDE [Concomitant]
     Indication: HYPERTENSION
     Dosage: 25 MG, 1X/DAY

REACTIONS (3)
  - Liver function test abnormal [Recovering/Resolving]
  - Hepatic enzyme increased [Unknown]
  - Insulin-like growth factor increased [Recovering/Resolving]
